FAERS Safety Report 9314765 (Version 2)
Quarter: 2013Q3

REPORT INFORMATION
  Report Type: Spontaneous
  Country: US (occurrence: US)
  Receive Date: 20130529
  Receipt Date: 20130709
  Transmission Date: 20140515
  Serious: Yes (Other)
  Sender: FDA-Public Use
  Company Number: US-PFIZER INC-2013161052

PATIENT
  Age: 81 Year
  Sex: Female
  Weight: 70.3 kg

DRUGS (2)
  1. LIPITOR [Suspect]
     Dosage: 40 MG DAILY
  2. ACCUPRIL [Suspect]
     Dosage: 40 MG DAILY

REACTIONS (3)
  - Foot fracture [Recovering/Resolving]
  - Abasia [Not Recovered/Not Resolved]
  - Hypoaesthesia [Not Recovered/Not Resolved]
